FAERS Safety Report 6766288-7 (Version None)
Quarter: 2010Q2

REPORT INFORMATION
  Report Type: 
  Country: None (occurrence: None)
  Receive Date: 20100611
  Receipt Date: 20100601
  Transmission Date: 20101027
  Serious: Yes (Hospitalization, Other)
  Sender: FDA-Public Use
  Company Number: FR-PFIZER INC-2009311543

PATIENT
  Age: 7 Year
  Sex: Female
  Weight: 20 kg

DRUGS (5)
  1. AMOXICILLIN [Suspect]
     Indication: PNEUMONIA
     Dosage: 1.5 G, 3X/DAY
     Dates: start: 20091207, end: 20091211
  2. ZARONTIN [Suspect]
     Indication: EPILEPSY
     Dosage: 400 MG, 2X/DAY
     Dates: start: 20091123, end: 20091216
  3. DEPAKENE [Concomitant]
     Indication: EPILEPSY
     Dosage: 600 MG, 2X/DAY
     Route: 048
     Dates: start: 20090701
  4. CEFPODOXIME PROXETIL [Concomitant]
     Dosage: UNK
     Dates: start: 20091201, end: 20091213
  5. CEFIXIME CHEWABLE [Concomitant]
     Dosage: UNK
     Dates: start: 20091213

REACTIONS (7)
  - ASTHENIA [None]
  - DRUG RASH WITH EOSINOPHILIA AND SYSTEMIC SYMPTOMS [None]
  - LUNG DISORDER [None]
  - LYMPHADENOPATHY [None]
  - PYREXIA [None]
  - RASH ERYTHEMATOUS [None]
  - RASH PRURITIC [None]
